FAERS Safety Report 23453928 (Version 2)
Quarter: 2024Q1

REPORT INFORMATION
  Report Type: Report from Study
  Country: BR (occurrence: BR)
  Receive Date: 20240129
  Receipt Date: 20240215
  Transmission Date: 20240410
  Serious: No
  Sender: FDA-Public Use
  Company Number: BR-TAKEDA-BR201905779

PATIENT
  Age: 29 Year
  Sex: Male
  Weight: 81 kg

DRUGS (27)
  1. HEMO-8R [Suspect]
     Active Substance: ANTIHEMOPHILIC FACTOR, HUMAN RECOMBINANT
     Indication: Factor VIII deficiency
     Dosage: UNK
     Route: 042
     Dates: start: 20160411
  2. AMOXILINA/ACIDO CLAVULANICO MAYNE [Concomitant]
     Indication: Dental care
  3. BUTYLSCOPOLAMINE BROMIDE\METAMIZOLE SODIUM [Concomitant]
     Active Substance: BUTYLSCOPOLAMINE BROMIDE\METAMIZOLE SODIUM
     Indication: Toothache
  4. CELEBRA [Concomitant]
     Active Substance: CELECOXIB
     Indication: Arthritis
  5. DEXAMETHASONE [Concomitant]
     Active Substance: DEXAMETHASONE
     Indication: Dental care
  6. METAMIZOLE [Concomitant]
     Active Substance: METAMIZOLE
     Indication: Pain
  7. HYDROCORTISONE [Concomitant]
     Active Substance: HYDROCORTISONE
     Indication: Dyspnoea
  8. IBUPROFEN [Concomitant]
     Active Substance: IBUPROFEN
     Indication: Dental care
  9. IBUPROFEN [Concomitant]
     Active Substance: IBUPROFEN
     Indication: Pain
  10. IBUPROFEN [Concomitant]
     Active Substance: IBUPROFEN
     Indication: Toothache
  11. OMEPRAZOLE [Concomitant]
     Active Substance: OMEPRAZOLE
     Indication: Abdominal pain upper
  12. TRANEXAMIC ACID [Concomitant]
     Active Substance: TRANEXAMIC ACID
     Indication: Dental care
  13. RANITIDINE [Concomitant]
     Active Substance: RANITIDINE
     Indication: Dyspepsia
  14. ACETAMINOPHEN [Concomitant]
     Active Substance: ACETAMINOPHEN
     Indication: Toothache
  15. TRAMADOL [Concomitant]
     Active Substance: TRAMADOL\TRAMADOL HYDROCHLORIDE
     Indication: Procedural pain
  16. BROMOPRIDA [Concomitant]
     Indication: Vomiting
  17. OMEPRAZOLE [Concomitant]
     Active Substance: OMEPRAZOLE
     Indication: Prophylaxis
  18. CLONAZEPAM [Concomitant]
     Active Substance: CLONAZEPAM
     Indication: Sedative therapy
  19. CEFALOTINA [CEFALOTIN] [Concomitant]
     Indication: Prophylaxis
  20. TRANEXAMIC ACID [Concomitant]
     Active Substance: TRANEXAMIC ACID
     Indication: Post procedural haemorrhage
  21. MORPHINE [Concomitant]
     Active Substance: MORPHINE
     Indication: Procedural pain
  22. GABAPENTIN [Concomitant]
     Active Substance: GABAPENTIN
     Indication: Pain
     Dosage: 300 MILLIGRAM, TID
     Dates: start: 20200113, end: 20200119
  23. TAMIFLU [Concomitant]
     Active Substance: OSELTAMIVIR PHOSPHATE
     Indication: COVID-19
     Dosage: 1 DOSAGE FORM, BID
     Dates: start: 20201002, end: 20201006
  24. TORANTE [Concomitant]
     Indication: COVID-19
     Dosage: 50 MILLILITER, TID
     Dates: start: 20201002, end: 20201006
  25. VITAMIN D3 [Concomitant]
     Active Substance: CHOLECALCIFEROL
     Indication: COVID-19
     Dosage: 7000 INTERNATIONAL UNIT, QOD
     Dates: start: 20201002, end: 20201008
  26. AZITHROMYCIN DIHYDRATE [Concomitant]
     Active Substance: AZITHROMYCIN DIHYDRATE
     Indication: COVID-19
     Dosage: 500 MILLIGRAM, QD
     Dates: start: 20201002, end: 20201007
  27. IVERMECTIN [Concomitant]
     Active Substance: IVERMECTIN
     Indication: COVID-19
     Dosage: 12 MILLIGRAM, QD
     Dates: start: 20201002, end: 20201003

REACTIONS (1)
  - Knee arthroplasty [Recovered/Resolved]

NARRATIVE: CASE EVENT DATE: 20190211
